FAERS Safety Report 9532705 (Version 1)
Quarter: 2013Q3

REPORT INFORMATION
  Report Type: Spontaneous
  Country: DK (occurrence: CH)
  Receive Date: 20130918
  Receipt Date: 20130918
  Transmission Date: 20140515
  Serious: Yes (Hospitalization, Other)
  Sender: FDA-Public Use
  Company Number: CH-FRI-1000048921

PATIENT
  Sex: Male
  Weight: 2.7 kg

DRUGS (3)
  1. ESCITALOPRAM [Suspect]
     Dosage: 10 MG
     Route: 064
  2. METHADONE [Suspect]
     Dosage: 26 MG
     Route: 064
  3. ALPRAZOLAM [Suspect]
     Route: 064
     Dates: end: 20130724

REACTIONS (5)
  - Retroplacental haematoma [Recovered/Resolved]
  - Umbilical cord abnormality [Recovered/Resolved]
  - Drug withdrawal syndrome neonatal [Recovered/Resolved]
  - Premature baby [Recovered/Resolved]
  - Foetal exposure during pregnancy [Recovered/Resolved]
